FAERS Safety Report 17862368 (Version 1)
Quarter: 2020Q2

REPORT INFORMATION
  Report Type: Spontaneous
  Country: US (occurrence: US)
  Receive Date: 20200604
  Receipt Date: 20200604
  Transmission Date: 20200714
  Serious: Yes (Other)
  Sender: FDA-Public Use
  Company Number: US-GE HEALTHCARE LIFE SCIENCES-2020CSU002214

PATIENT
  Age: 69 Year
  Sex: Female

DRUGS (3)
  1. VISIPAQUE [Suspect]
     Active Substance: IODIXANOL
     Indication: CATHETERISATION CARDIAC
     Dosage: 320 MG, SINGLE
     Route: 013
  2. VISIPAQUE [Suspect]
     Active Substance: IODIXANOL
     Indication: STENT PLACEMENT
  3. VISIPAQUE [Suspect]
     Active Substance: IODIXANOL
     Indication: CARDIAC STRESS TEST ABNORMAL

REACTIONS (2)
  - Contrast encephalopathy [Recovered/Resolved]
  - Extra dose administered [Recovered/Resolved]
